FAERS Safety Report 4297272-3 (Version None)
Quarter: 2004Q1

REPORT INFORMATION
  Report Type: 
  Country: None (occurrence: None)
  Receive Date: 20040213
  Receipt Date: 20040204
  Transmission Date: 20041129
  Serious: Yes (Disabling)
  Sender: FDA-Public Use
  Company Number: K200400144

PATIENT
  Age: 66 Year
  Sex: Male

DRUGS (2)
  1. ALTACE [Suspect]
     Dates: end: 20030101
  2. UROXATRAL [Concomitant]

REACTIONS (1)
  - PAROSMIA [None]
